FAERS Safety Report 16053157 (Version 1)
Quarter: 2019Q1

REPORT INFORMATION
  Report Type: Spontaneous
  Country: US (occurrence: US)
  Receive Date: 20190308
  Receipt Date: 20190308
  Transmission Date: 20190418
  Serious: No
  Sender: FDA-Public Use
  Company Number: US-BIOGEN-2018BI00667710

PATIENT
  Sex: Female

DRUGS (2)
  1. TECFIDERA [Suspect]
     Active Substance: DIMETHYL FUMARATE
     Dosage: MAINTENANCE DOSE
     Route: 050
  2. TECFIDERA [Suspect]
     Active Substance: DIMETHYL FUMARATE
     Indication: MULTIPLE SCLEROSIS
     Dosage: STARTER DOSE
     Route: 050

REACTIONS (16)
  - Osteoporosis [Unknown]
  - Balance disorder [Unknown]
  - Fatigue [Unknown]
  - White blood cell count decreased [Unknown]
  - Pruritus [Unknown]
  - Anal incontinence [Not Recovered/Not Resolved]
  - Pain in extremity [Not Recovered/Not Resolved]
  - Cognitive disorder [Not Recovered/Not Resolved]
  - Memory impairment [Unknown]
  - Weight decreased [Unknown]
  - Hypothyroidism [Unknown]
  - Gastric disorder [Unknown]
  - Muscle spasms [Not Recovered/Not Resolved]
  - Alopecia [Not Recovered/Not Resolved]
  - Insomnia [Unknown]
  - Tooth loss [Unknown]
